FAERS Safety Report 10957788 (Version 1)
Quarter: 2015Q1

REPORT INFORMATION
  Report Type: Spontaneous
  Country: US (occurrence: US)
  Receive Date: 20150326
  Receipt Date: 20150326
  Transmission Date: 20150721
  Serious: No
  Sender: FDA-Public Use
  Company Number: US-ASTRAZENECA-2015SE24310

PATIENT
  Age: 2197 Week
  Sex: Female
  Weight: 77.1 kg

DRUGS (1)
  1. BYETTA [Suspect]
     Active Substance: EXENATIDE
     Indication: TYPE 2 DIABETES MELLITUS
     Route: 058
     Dates: start: 20150307, end: 20150307

REACTIONS (5)
  - Palpitations [Unknown]
  - Blood glucose increased [Unknown]
  - Insomnia [Unknown]
  - Drug ineffective [Unknown]
  - Pollakiuria [Unknown]

NARRATIVE: CASE EVENT DATE: 20150307
